FAERS Safety Report 15689941 (Version 1)
Quarter: 2018Q4

REPORT INFORMATION
  Report Type: Spontaneous
  Country: CH (occurrence: CH)
  Receive Date: 20181205
  Receipt Date: 20181205
  Transmission Date: 20190205
  Serious: Yes (Hospitalization)
  Sender: FDA-Public Use
  Company Number: CH-BAYER-2018-219680

PATIENT
  Age: 79 Year
  Sex: Male

DRUGS (9)
  1. COMBIGAN [Concomitant]
     Active Substance: BRIMONIDINE TARTRATE\TIMOLOL MALEATE
     Dosage: 1 GTT, QD
     Route: 031
  2. ATORVASTATIN PFIZER [Concomitant]
     Active Substance: ATORVASTATIN
     Dosage: 40 MG, QD
     Route: 048
  3. ACTOS [Concomitant]
     Active Substance: PIOGLITAZONE HYDROCHLORIDE
     Dosage: 45 MG, QD
     Route: 048
  4. PANTOZOL [Concomitant]
     Active Substance: PANTOPRAZOLE SODIUM
     Dosage: 40 MG, QD
     Route: 048
  5. CIRCADIN [Concomitant]
     Active Substance: MELATONIN
     Dosage: 2 MG, QD
     Route: 048
  6. CIPRALEX [ESCITALOPRAM] [Concomitant]
     Dosage: 10 MG, QD
     Route: 048
  7. PLAVIX [Suspect]
     Active Substance: CLOPIDOGREL BISULFATE
     Dosage: 75 MG, QD
     Route: 048
     Dates: end: 20181025
  8. ASPIRIN CARDIO 100 MG [Suspect]
     Active Substance: ASPIRIN
     Dosage: 100 MG, QD
     Route: 048
  9. DIAMICRON [Concomitant]
     Active Substance: GLICLAZIDE
     Dosage: 60 MG, QD
     Route: 048

REACTIONS (2)
  - Traumatic intracranial haemorrhage [Recovering/Resolving]
  - Cerebral haematoma [Recovering/Resolving]

NARRATIVE: CASE EVENT DATE: 20181025
